FAERS Safety Report 7476291-X (Version None)
Quarter: 2011Q2

REPORT INFORMATION
  Report Type: 
  Country: None (occurrence: None)
  Receive Date: 20110510
  Receipt Date: 20110510
  Transmission Date: 20111010
  Serious: Yes (Other)
  Sender: FDA-Public Use
  Company Number: None

PATIENT
  Sex: Female
  Weight: 63.5036 kg

DRUGS (3)
  1. ZYRTEC [Suspect]
  2. ALLEGRA [Suspect]
  3. CLARITIN [Suspect]

REACTIONS (1)
  - DRUG INEFFECTIVE [None]
